FAERS Safety Report 5142719-3 (Version None)
Quarter: 2006Q4

REPORT INFORMATION
  Report Type: 
  Country: None (occurrence: None)
  Receive Date: 20061027
  Receipt Date: 20061010
  Transmission Date: 20070319
  Serious: Yes (Other)
  Sender: FDA-Public Use
  Company Number: US200610002370

PATIENT
  Age: 42 Year
  Sex: Female
  Weight: 181.4 kg

DRUGS (1)
  1. CYMBALTA [Suspect]
     Dosage: 30 MG
     Dates: start: 20060601, end: 20060701

REACTIONS (1)
  - BLOOD PRESSURE INCREASED [None]
